FAERS Safety Report 5509946-4 (Version None)
Quarter: 2007Q4

REPORT INFORMATION
  Report Type: 
  Country: None (occurrence: None)
  Receive Date: 20071108
  Receipt Date: 20071029
  Transmission Date: 20080405
  Serious: Yes (Death, Hospitalization)
  Sender: FDA-Public Use
  Company Number: US-AMGEN-US250250

PATIENT
  Age: 16 Year
  Sex: Male
  Weight: 114 kg

DRUGS (7)
  1. ENBREL [Suspect]
     Indication: IDIOPATHIC PNEUMONIA SYNDROME
     Route: 065
     Dates: start: 20070928, end: 20071019
  2. METHYLPREDNISOLONE [Suspect]
     Route: 065
     Dates: start: 20070928, end: 20071011
  3. METHYLPREDNISOLONE [Suspect]
     Route: 065
     Dates: start: 20071012, end: 20071015
  4. METHYLPREDNISOLONE [Suspect]
     Route: 065
     Dates: start: 20071016, end: 20071024
  5. FOSCARNET SODIUM [Concomitant]
     Route: 065
  6. CYCLOSPORINE [Concomitant]
     Route: 065
  7. GANCICLOVIR [Concomitant]
     Route: 065

REACTIONS (5)
  - ACUTE RESPIRATORY DISTRESS SYNDROME [None]
  - CYTOMEGALOVIRUS INFECTION [None]
  - HYPOXIA [None]
  - INTERSTITIAL LUNG DISEASE [None]
  - RENAL FAILURE [None]
